FAERS Safety Report 10340189 (Version 1)
Quarter: 2014Q3

REPORT INFORMATION
  Report Type: Spontaneous
  Country: US (occurrence: None)
  Receive Date: 20140722
  Receipt Date: 20140722
  Transmission Date: 20150326
  Serious: Yes (Hospitalization)
  Sender: FDA-Public Use
  Company Number: CC 14-0041

PATIENT
  Age: 75 Year
  Sex: Female
  Weight: 73.48 kg

DRUGS (5)
  1. POTASSIUM [Concomitant]
     Active Substance: POTASSIUM
  2. STOOL SOFTENER (DOCUSATE SODIUM) [Suspect]
     Active Substance: DOCUSATE SODIUM
     Indication: FAECES HARD
     Dosage: 2 CAPUSLES, DAILY, ORAL
     Route: 048
  3. SPIRONOLACTONE. [Concomitant]
     Active Substance: SPIRONOLACTONE
  4. CALCIUM [Concomitant]
     Active Substance: CALCIUM
  5. METOPROLOL [Concomitant]
     Active Substance: METOPROLOL

REACTIONS (10)
  - Throat irritation [None]
  - Cough [None]
  - Haemorrhoids [None]
  - Foreign body [None]
  - Blood pressure increased [None]
  - Aphonia [None]
  - Product physical issue [None]
  - Vomiting [None]
  - Impaired healing [None]
  - Increased upper airway secretion [None]

NARRATIVE: CASE EVENT DATE: 20140603
